FAERS Safety Report 6499200-9 (Version None)
Quarter: 2009Q4

REPORT INFORMATION
  Report Type: 
  Country: None (occurrence: None)
  Receive Date: 20091215
  Receipt Date: 20091209
  Transmission Date: 20100525
  Serious: Yes (Hospitalization)
  Sender: FDA-Public Use
  Company Number: US-ELI_LILLY_AND_COMPANY-US200912002297

PATIENT
  Sex: Male

DRUGS (4)
  1. HUMULIN N [Suspect]
     Indication: DIABETES MELLITUS
     Dosage: 8 U, 2/D
     Dates: end: 20090901
  2. HUMULIN R [Suspect]
     Indication: DIABETES MELLITUS
     Dosage: 20 U, 2/D
     Dates: end: 20090901
  3. HUMULIN R [Suspect]
     Dosage: UNK, AS NEEDED
     Dates: start: 20010101, end: 20090901
  4. HUMULIN R [Suspect]
     Dosage: 30 U, 2/D
     Dates: start: 20090901

REACTIONS (5)
  - BLOOD GLUCOSE INCREASED [None]
  - BLOOD TRIGLYCERIDES INCREASED [None]
  - DRUG INEFFECTIVE [None]
  - LIPIDS INCREASED [None]
  - VISUAL IMPAIRMENT [None]
